FAERS Safety Report 25283698 (Version 1)
Quarter: 2025Q2

REPORT INFORMATION
  Report Type: Spontaneous
  Country: US (occurrence: None)
  Receive Date: 20250508
  Receipt Date: 20250508
  Transmission Date: 20250717
  Serious: Yes (Other)
  Sender: FDA-CTU
  Company Number: None

PATIENT
  Age: 68 Year
  Sex: Female
  Weight: 76.05 kg

DRUGS (1)
  1. DICLOFENAC SODIUM [Suspect]
     Active Substance: DICLOFENAC SODIUM
     Indication: Arthritis
     Dosage: FREQUENCY : DAILY;?
     Route: 048
     Dates: start: 20250201, end: 20250214

REACTIONS (3)
  - Oral pain [None]
  - Mouth ulceration [None]
  - Therapy cessation [None]

NARRATIVE: CASE EVENT DATE: 20250214
